FAERS Safety Report 4440937-0 (Version None)
Quarter: 2004Q3

REPORT INFORMATION
  Report Type: 
  Country: None (occurrence: None)
  Receive Date: 20040728
  Receipt Date: 20040413
  Transmission Date: 20050211
  Serious: No
  Sender: FDA-Public Use
  Company Number: USA040464687

PATIENT
  Sex: Male

DRUGS (5)
  1. STRATTERA [Suspect]
     Dates: start: 20040408
  2. LAMISIL (TERBINAPINE HYDROCHLORIDE) [Concomitant]
  3. CLARITIN [Concomitant]
  4. SUDAFED 12 HOUR [Concomitant]
  5. NEXIUM [Concomitant]

REACTIONS (7)
  - ABNORMAL BEHAVIOUR [None]
  - DRY MOUTH [None]
  - DYSURIA [None]
  - ERECTILE DYSFUNCTION [None]
  - MALAISE [None]
  - NERVOUSNESS [None]
  - SLEEP DISORDER [None]
